FAERS Safety Report 21628759 (Version 1)
Quarter: 2022Q4

REPORT INFORMATION
  Report Type: Spontaneous
  Country: US (occurrence: None)
  Receive Date: 20221121
  Receipt Date: 20221121
  Transmission Date: 20230112
  Serious: No
  Sender: FDA-Public Use
  Company Number: None

PATIENT
  Sex: Female

DRUGS (2)
  1. AIMOVIG [Suspect]
     Active Substance: ERENUMAB-AOOE
     Indication: Migraine without aura
     Dosage: FREQUENCY : MONTHLY;?
     Route: 058
     Dates: start: 20220607, end: 202210
  2. AIMOVIG [Suspect]
     Active Substance: ERENUMAB-AOOE
     Indication: Status migrainosus

REACTIONS (5)
  - Arthralgia [None]
  - Abdominal pain upper [None]
  - Dyspepsia [None]
  - Fatigue [None]
  - Drug ineffective [None]
